FAERS Safety Report 18601419 (Version 1)
Quarter: 2020Q4

REPORT INFORMATION
  Report Type: Spontaneous
  Country: US (occurrence: US)
  Receive Date: 20201210
  Receipt Date: 20201210
  Transmission Date: 20210114
  Serious: Yes (Hospitalization, Other)
  Sender: FDA-Public Use
  Company Number: US-009507513-1109USA02411

PATIENT
  Sex: Female

DRUGS (12)
  1. FOSAMAX [Suspect]
     Active Substance: ALENDRONATE SODIUM
     Indication: OSTEOPENIA
     Dosage: 70 MG, UNK
     Route: 048
     Dates: start: 200911, end: 201007
  2. PREMPRO [Suspect]
     Active Substance: ESTROGENS, CONJUGATED\MEDROXYPROGESTERONE ACETATE
     Indication: OSTEOPENIA
  3. SYNTHROID [Concomitant]
     Active Substance: LEVOTHYROXINE SODIUM
     Dosage: UNK MG, UNK
  4. FOSAMAX PLUS D [Suspect]
     Active Substance: ALENDRONATE SODIUM\CHOLECALCIFEROL
     Indication: OSTEOPENIA
     Dosage: 70/2800
     Route: 048
     Dates: start: 20060413, end: 200910
  5. FOSAMAX [Suspect]
     Active Substance: ALENDRONATE SODIUM
     Indication: OSTEOPENIA
     Dosage: 10 MG, UNK
     Route: 048
     Dates: start: 19980226
  6. OSCAL [Concomitant]
     Active Substance: CALCIUM CARBONATE
     Indication: OSTEOPOROSIS POSTMENOPAUSAL
  7. VITAMIN D (UNSPECIFIED) [Concomitant]
     Active Substance: VITAMIN D NOS
     Indication: OSTEOPOROSIS POSTMENOPAUSAL
  8. PREMPRO [Suspect]
     Active Substance: ESTROGENS, CONJUGATED\MEDROXYPROGESTERONE ACETATE
     Indication: OSTEOPOROSIS
     Dates: start: 19990125, end: 19990426
  9. LIPITOR [Concomitant]
     Active Substance: ATORVASTATIN CALCIUM
     Indication: BLOOD CHOLESTEROL INCREASED
     Dosage: UNK MG, UNK
  10. FOSAMAX [Suspect]
     Active Substance: ALENDRONATE SODIUM
     Indication: OSTEOPOROSIS POSTMENOPAUSAL
     Dosage: 70 MG, UNK
     Route: 048
     Dates: start: 1999, end: 200603
  11. VITAMIN D (UNSPECIFIED) [Concomitant]
     Active Substance: VITAMIN D NOS
     Indication: OSTEOPENIA
  12. OSCAL [Concomitant]
     Active Substance: CALCIUM CARBONATE
     Indication: OSTEOPENIA

REACTIONS (37)
  - Pain in extremity [Unknown]
  - Tooth disorder [Unknown]
  - Intervertebral disc degeneration [Unknown]
  - Limb asymmetry [Unknown]
  - Fall [Unknown]
  - Visual impairment [Unknown]
  - Osteoarthritis [Unknown]
  - Scoliosis [Unknown]
  - Sciatica [Unknown]
  - Thermal burn [Unknown]
  - Ligament sprain [Unknown]
  - Ecchymosis [Unknown]
  - Spondylolisthesis [Unknown]
  - Uterine leiomyoma [Unknown]
  - Abdominal distension [Unknown]
  - Fall [Unknown]
  - Cauda equina syndrome [Unknown]
  - Tooth disorder [Unknown]
  - Foot fracture [Unknown]
  - Back pain [Unknown]
  - Essential hypertension [Recovering/Resolving]
  - Tooth disorder [Unknown]
  - Rectocele [Not Recovered/Not Resolved]
  - Spinal compression fracture [Unknown]
  - Sinus tarsi syndrome [Unknown]
  - Osteoporosis [Unknown]
  - Foot deformity [Unknown]
  - Breast cyst [Unknown]
  - Carotid artery stenosis [Unknown]
  - Enterocele [Unknown]
  - Breast tenderness [Unknown]
  - Alopecia [Unknown]
  - Drug ineffective [Unknown]
  - Back pain [Unknown]
  - Femur fracture [Unknown]
  - Electrocardiogram T wave abnormal [Recovered/Resolved]
  - Diverticulum [Unknown]

NARRATIVE: CASE EVENT DATE: 19990125
